FAERS Safety Report 21913277 (Version 1)
Quarter: 2023Q1

REPORT INFORMATION
  Report Type: Spontaneous
  Country: US (occurrence: US)
  Receive Date: 20230125
  Receipt Date: 20230125
  Transmission Date: 20230417
  Serious: No
  Sender: FDA-Public Use
  Company Number: US-ALLERGAN-2239417US

PATIENT
  Sex: Female
  Weight: 68.027 kg

DRUGS (7)
  1. BOTOX [Suspect]
     Active Substance: ONABOTULINUMTOXINA
     Indication: Torticollis
     Dosage: UNK UNK, SINGLE
  2. PENNSAID [Concomitant]
     Active Substance: DICLOFENAC SODIUM
     Dosage: TOPICAL SOLUTION IN PACKET
  3. CYCLOBENZAPRINE [Concomitant]
     Active Substance: CYCLOBENZAPRINE
     Dosage: 10 MG
     Route: 048
  4. DIAZEPAM [Concomitant]
     Active Substance: DIAZEPAM
     Dosage: 10 MG
     Route: 048
  5. ESTRADIOL [Concomitant]
     Active Substance: ESTRADIOL
     Dosage: 2 MG
     Route: 048
  6. ACETAMINOPHEN\HYDROCODONE [Concomitant]
     Active Substance: ACETAMINOPHEN\HYDROCODONE
     Dosage: 10-325 MG
     Route: 048
  7. LYRICA [Concomitant]
     Active Substance: PREGABALIN
     Dosage: 50 MG
     Route: 048

REACTIONS (7)
  - Arthralgia [Unknown]
  - Pain in extremity [Unknown]
  - Neck pain [Unknown]
  - Spinal flattening [Unknown]
  - Muscle contractions involuntary [Unknown]
  - Muscular weakness [Unknown]
  - Myalgia [Unknown]
